FAERS Safety Report 8167240-X (Version None)
Quarter: 2012Q1

REPORT INFORMATION
  Report Type: 
  Country: None (occurrence: None)
  Receive Date: 20120227
  Receipt Date: 20120217
  Transmission Date: 20120608
  Serious: Yes (Disabling)
  Sender: FDA-Public Use
  Company Number: JP-JNJFOC-20120210606

PATIENT
  Age: 40 Year
  Sex: Female

DRUGS (5)
  1. LODOPIN [Concomitant]
     Indication: SCHIZOPHRENIA
     Route: 048
     Dates: start: 20100430, end: 20100706
  2. HALOPERIDOL [Concomitant]
     Indication: SCHIZOPHRENIA
     Route: 048
     Dates: start: 20100430, end: 20100706
  3. ROHYPNOL [Concomitant]
     Indication: INSOMNIA
     Route: 048
     Dates: start: 20100430, end: 20100706
  4. RISPERDAL [Suspect]
     Indication: SCHIZOPHRENIA
     Route: 048
     Dates: start: 20100430, end: 20100706
  5. PHENOBARBITAL TAB [Concomitant]
     Indication: SCHIZOPHRENIA
     Route: 048
     Dates: start: 20100430, end: 20100706

REACTIONS (1)
  - PULMONARY EMBOLISM [None]
